FAERS Safety Report 18314228 (Version 2)
Quarter: 2020Q4

REPORT INFORMATION
  Report Type: Other
  Country: US (occurrence: US)
  Receive Date: 20200925
  Receipt Date: 20201113
  Transmission Date: 20210113
  Serious: Yes (Hospitalization, Other)
  Sender: FDA-Public Use
  Company Number: US-AMAG PHARMACEUTICALS, INC.-AMAG202003226

PATIENT
  Age: 34 Year
  Sex: Female

DRUGS (7)
  1. METOCLOPRAMIDE. [Concomitant]
     Active Substance: METOCLOPRAMIDE
     Indication: VOMITING
  2. PRENATAL VITAMIN [Concomitant]
     Active Substance: VITAMINS
     Indication: PREGNANCY
     Dosage: 27 MG-1MG
     Dates: start: 20200529
  3. ONDANSETRON HCC [Concomitant]
     Indication: NAUSEA
     Dates: start: 20200608, end: 20200623
  4. METOCLOPRAMIDE. [Concomitant]
     Active Substance: METOCLOPRAMIDE
     Indication: NAUSEA
     Dates: start: 20200605, end: 20200811
  5. MAKENA [Suspect]
     Active Substance: HYDROXYPROGESTERONE CAPROATE
     Indication: PREMATURE DELIVERY
     Dosage: 275MG/1.1ML
     Route: 058
     Dates: start: 20200701, end: 20200827
  6. ONDANSETRON HCC [Concomitant]
     Indication: VOMITING
  7. FLAGYL [Concomitant]
     Active Substance: METRONIDAZOLE\METRONIDAZOLE HYDROCHLORIDE
     Indication: TRICHOMONIASIS

REACTIONS (4)
  - Dyspepsia [Unknown]
  - Premature delivery [Recovered/Resolved]
  - Hypokalaemia [Unknown]
  - Product administration error [Unknown]
